FAERS Safety Report 6244873-9 (Version None)
Quarter: 2009Q2

REPORT INFORMATION
  Report Type: 
  Country: None (occurrence: None)
  Receive Date: 20090623
  Receipt Date: 20090623
  Transmission Date: 20091009
  Serious: No
  Sender: FDA-Public Use
  Company Number: None

PATIENT
  Age: 61 Year
  Sex: Male
  Weight: 77.1115 kg

DRUGS (2)
  1. ZICAM COLD REMEDY HOPMEOPATHIC NASAL GEL MATRIXX INIATIVES [Suspect]
     Indication: NASAL CONGESTION
     Dosage: ONE PUMP PER NOSTRIL FOUR HRS NASAL
     Route: 045
     Dates: start: 20040804, end: 20070305
  2. ZICAM COLD REMEDY HOPMEOPATHIC NASAL GEL MATRIXX INIATIVES [Suspect]
     Indication: NASOPHARYNGITIS
     Dosage: ONE PUMP PER NOSTRIL FOUR HRS NASAL
     Route: 045
     Dates: start: 20040804, end: 20070305

REACTIONS (4)
  - AGEUSIA [None]
  - ANOSMIA [None]
  - HYPOSMIA [None]
  - NASAL DISCOMFORT [None]
